FAERS Safety Report 8050176-2 (Version None)
Quarter: 2012Q1

REPORT INFORMATION
  Report Type: 
  Country: None (occurrence: None)
  Receive Date: 20120117
  Receipt Date: 20120111
  Transmission Date: 20120608
  Serious: Yes (Other)
  Sender: FDA-Public Use
  Company Number: CA-MERCK-1201USA01454

PATIENT
  Age: 52 Year
  Sex: Male

DRUGS (10)
  1. ISENTRESS [Suspect]
     Route: 048
  2. IMODIUM [Concomitant]
     Route: 065
  3. FUZEON [Suspect]
     Route: 065
  4. PREZISTA [Suspect]
     Route: 048
  5. ISENTRESS [Suspect]
     Route: 065
  6. ZIAGEN [Suspect]
     Route: 065
  7. ASPIRIN [Concomitant]
     Route: 065
  8. PREZISTA [Suspect]
     Route: 048
  9. RITONAVIR [Suspect]
     Route: 065
  10. BACTRIM [Concomitant]
     Route: 065

REACTIONS (3)
  - ECCHYMOSIS [None]
  - UNDERDOSE [None]
  - ACCIDENTAL OVERDOSE [None]
